FAERS Safety Report 4263715-4 (Version None)
Quarter: 2004Q1

REPORT INFORMATION
  Report Type: 
  Country: None (occurrence: None)
  Receive Date: 20040102
  Receipt Date: 20031216
  Transmission Date: 20041129
  Serious: Yes (Life-Threatening, Hospitalization, Disabling, Other)
  Sender: FDA-Public Use
  Company Number: JP_031001983

PATIENT
  Age: 25 Year
  Sex: Male

DRUGS (2)
  1. ZYPREXA [Suspect]
     Indication: SCHIZOPHRENIA
     Dosage: 10 MG/DAY
     Dates: start: 20020206, end: 20031009
  2. SERENACE (HALOPERIDOL) [Concomitant]

REACTIONS (25)
  - ABULIA [None]
  - ANXIETY [None]
  - CATHETER RELATED INFECTION [None]
  - DECREASED APPETITE [None]
  - DEHYDRATION [None]
  - DIABETIC COMA [None]
  - DIABETIC KETOACIDOSIS [None]
  - HAEMODIALYSIS [None]
  - HEART RATE INCREASED [None]
  - HYPERVENTILATION [None]
  - HYPOTENSION [None]
  - METABOLIC ACIDOSIS [None]
  - OBESITY [None]
  - OLIGURIA [None]
  - PNEUMONIA STAPHYLOCOCCAL [None]
  - PSYCHOTIC DISORDER [None]
  - PYREXIA [None]
  - RENAL FAILURE ACUTE [None]
  - RESPIRATORY DISORDER [None]
  - RHABDOMYOLYSIS [None]
  - STAPHYLOCOCCAL INFECTION [None]
  - SYSTEMIC INFLAMMATORY RESPONSE SYNDROME [None]
  - TACHYPNOEA [None]
  - URINARY TRACT INFECTION [None]
  - WHITE BLOOD CELL COUNT INCREASED [None]
